FAERS Safety Report 6076997-3 (Version None)
Quarter: 2009Q1

REPORT INFORMATION
  Report Type: 
  Country: None (occurrence: None)
  Receive Date: 20090211
  Receipt Date: 20090204
  Transmission Date: 20090719
  Serious: Yes (Death)
  Sender: FDA-Public Use
  Company Number: CIO09002828

PATIENT
  Age: 2 Year
  Sex: Female

DRUGS (1)
  1. CREST TOOTHPASTE, FORM/VERSION/FLAVOR UNKNOWN (POTASSIUM NITRATE) [Suspect]
     Dosage: 1 SPLASH, 1 ONLY FOR 1 DAY, OPHTHALMIC
     Route: 047

REACTIONS (2)
  - ACCIDENTAL DRUG INTAKE BY CHILD [None]
  - INCORRECT ROUTE OF DRUG ADMINISTRATION [None]
